FAERS Safety Report 8855056 (Version 1)
Quarter: 2012Q4

REPORT INFORMATION
  Report Type: 
  Country: US (occurrence: US)
  Receive Date: 20121023
  Receipt Date: 20121023
  Transmission Date: 20130627
  Serious: No
  Sender: FDA-Public Use
  Company Number: US-PFIZER INC-2012262150

PATIENT
  Sex: Female

DRUGS (2)
  1. ZOLOFT [Suspect]
     Dosage: 25 mg, UNK
     Dates: start: 2012, end: 2012
  2. ZOLOFT [Suspect]
     Dosage: 50 mg, UNK
     Dates: start: 2012

REACTIONS (1)
  - Tremor [Unknown]
